FAERS Safety Report 23109635 (Version 1)
Quarter: 2023Q4

REPORT INFORMATION
  Report Type: Spontaneous
  Country: US (occurrence: US)
  Receive Date: 20231026
  Receipt Date: 20231026
  Transmission Date: 20240109
  Serious: Yes (Life-Threatening, Hospitalization, Other)
  Sender: FDA-Public Use
  Company Number: US-AMGEN-USASP2023186065

PATIENT
  Age: 63 Year
  Sex: Male

DRUGS (11)
  1. RITUXIMAB [Suspect]
     Active Substance: RITUXIMAB
     Indication: Autoimmune haemolytic anaemia
     Dosage: UNK
     Route: 065
  2. PREDNISONE [Concomitant]
     Active Substance: PREDNISONE
     Dosage: UNK
     Route: 065
  3. AMIODARONE [Concomitant]
     Active Substance: AMIODARONE
     Route: 065
  4. APIXABAN [Concomitant]
     Active Substance: APIXABAN
     Indication: Pulmonary embolism
  5. MIDAZOLAM [Concomitant]
     Active Substance: MIDAZOLAM
     Dosage: 2 MILLIGRAM
     Route: 065
  6. DEXMEDETOMIDINE [Concomitant]
     Active Substance: DEXMEDETOMIDINE
     Dosage: 100 MICROGRAM
     Route: 065
  7. DOBUTAMINE [Concomitant]
     Active Substance: DOBUTAMINE HYDROCHLORIDE
     Dosage: UNK
  8. FENTANYL [Concomitant]
     Active Substance: FENTANYL\FENTANYL CITRATE
     Dosage: 75 MICROGRAM
     Route: 065
  9. PROPOFOL [Concomitant]
     Active Substance: PROPOFOL
     Dosage: 100 MICROGRAM
  10. SUCCINYLCHOLINE [Concomitant]
     Active Substance: SUCCINYLCHOLINE
     Dosage: 120 MILLIGRAM
  11. SEVOFLURANE [Concomitant]
     Active Substance: SEVOFLURANE

REACTIONS (10)
  - Ventricular extrasystoles [Unknown]
  - Cold type haemolytic anaemia [Unknown]
  - Circulatory collapse [Unknown]
  - Coronary artery thrombosis [Unknown]
  - Myocardial ischaemia [Unknown]
  - Ventricular tachycardia [Unknown]
  - Atrial fibrillation [Unknown]
  - Ventricular fibrillation [Unknown]
  - Drug effective for unapproved indication [Unknown]
  - Off label use [Unknown]
